FAERS Safety Report 5181782-0 (Version None)
Quarter: 2006Q4

REPORT INFORMATION
  Report Type: 
  Country: None (occurrence: None)
  Receive Date: 20061220
  Receipt Date: 20061212
  Transmission Date: 20070319
  Serious: Yes (Other)
  Sender: FDA-Public Use
  Company Number: FR-JNJFOC-20061203356

PATIENT
  Age: 75 Year
  Sex: Female
  Weight: 48 kg

DRUGS (1)
  1. HALOPERIDOL DECANOATE [Suspect]
     Indication: PSYCHOTIC DISORDER
     Route: 030
     Dates: start: 20050101

REACTIONS (1)
  - WEIGHT DECREASED [None]
